FAERS Safety Report 18740258 (Version 1)
Quarter: 2021Q1

REPORT INFORMATION
  Report Type: Spontaneous
  Country: US (occurrence: US)
  Receive Date: 20210114
  Receipt Date: 20210114
  Transmission Date: 20210419
  Serious: Yes (Other)
  Sender: FDA-Public Use
  Company Number: None

PATIENT
  Age: 15 Year
  Sex: Female
  Weight: 42.3 kg

DRUGS (2)
  1. SERTRALINE TABLETS, USP, 50 MG [Suspect]
     Active Substance: SERTRALINE HYDROCHLORIDE
     Indication: DEPRESSION
     Dosage: ?          QUANTITY:30 TABLET(S);?
     Route: 048
     Dates: start: 20210105
  2. TYLENOL 8 HR ARTHRITIS PAIN [Suspect]
     Active Substance: ACETAMINOPHEN
     Indication: ABDOMINAL PAIN
     Dosage: ?          QUANTITY:2 TABLET(S);?
     Route: 048

REACTIONS (6)
  - Prescription drug used without a prescription [None]
  - Serotonin syndrome [None]
  - Eye movement disorder [None]
  - Malaise [None]
  - Tremor [None]
  - Hypotension [None]

NARRATIVE: CASE EVENT DATE: 20210107
